FAERS Safety Report 5067310-9 (Version None)
Quarter: 2006Q3

REPORT INFORMATION
  Report Type: 
  Country: None (occurrence: None)
  Receive Date: 20060714
  Receipt Date: 20060413
  Transmission Date: 20061208
  Serious: Yes (Hospitalization)
  Sender: FDA-Public Use
  Company Number: 2006SP001676

PATIENT
  Age: 71 Year
  Sex: Female
  Weight: 51.7101 kg

DRUGS (6)
  1. LUNESTA [Suspect]
     Indication: INSOMNIA
     Dosage: 3 MG; ORAL
     Route: 048
     Dates: start: 20050101
  2. TOPROL-XL [Concomitant]
  3. DILTIAZEM HCL [Concomitant]
  4. ZETIA [Concomitant]
  5. ATORVASTATIN CALCIUM [Concomitant]
  6. ASPIRIN [Concomitant]

REACTIONS (3)
  - ABDOMINAL PAIN [None]
  - DYSGEUSIA [None]
  - WEIGHT DECREASED [None]
